FAERS Safety Report 16831852 (Version 1)
Quarter: 2019Q4

REPORT INFORMATION
  Report Type: Spontaneous
  Country: US (occurrence: US)
  Receive Date: 20190919
  Receipt Date: 20190919
  Transmission Date: 20200122
  Serious: Yes (Other)
  Sender: FDA-Public Use
  Company Number: None

PATIENT
  Sex: Male

DRUGS (6)
  1. ENBREL [Suspect]
     Active Substance: ETANERCEPT
     Indication: PSORIASIS
     Dosage: ?          OTHER FREQUENCY:WEEKLY;?
     Route: 058
     Dates: start: 20170110
  2. TAMSULOSIN [Concomitant]
     Active Substance: TAMSULOSIN
  3. PREDNISONE. [Concomitant]
     Active Substance: PREDNISONE
  4. LATANOPROST. [Concomitant]
     Active Substance: LATANOPROST
  5. RESTASIS [Concomitant]
     Active Substance: CYCLOSPORINE
  6. NEPROXEN [Concomitant]

REACTIONS (2)
  - Prostate cancer [None]
  - Condition aggravated [None]
